FAERS Safety Report 8550524-0 (Version None)
Quarter: 2012Q3

REPORT INFORMATION
  Report Type: 
  Country: None (occurrence: None)
  Receive Date: 20120718
  Receipt Date: 20120706
  Transmission Date: 20120928
  Serious: Yes (Hospitalization)
  Sender: FDA-Public Use
  Company Number: AUR-APL-2012-02951

PATIENT
  Age: 82 Year
  Sex: Female

DRUGS (11)
  1. NAPROXEN [Suspect]
     Indication: ARTHRITIS
     Dosage: 1000 MG (500 MG, 2  IN 1 D), ORAL
     Route: 048
     Dates: end: 20120617
  2. ALENDRONATE SODIUM [Suspect]
     Indication: ARTHRITIS
     Dosage: 3 DOSAGE FORMS (1 DOSAGE FORMS, 3 IN 1 D). TROPICAL
     Route: 061
     Dates: start: 20120601, end: 20120601
  3. LAXIDO (MACROGOL 3350) [Concomitant]
  4. CITALOPRAM HYDROBROMIDE [Concomitant]
  5. DOUBLEBASE (HYDROMOL) [Concomitant]
  6. HYPEMELLOSE (HYPROMELLOSE) [Concomitant]
  7. OMEPRAZOLE [Concomitant]
  8. ACETAMINOPHEN W/ CODEINE [Concomitant]
  9. FOLIC ACID [Concomitant]
  10. ASPIRIN [Suspect]
     Indication: PRODUCT USED FOR UNKNOWN INDICATION
     Dosage: 75 MG (75 MG, 1 IN 1 D), ORAL
     Route: 048
  11. ALENDRONATE SODIUM [Concomitant]

REACTIONS (6)
  - HAEMOGLOBIN DECREASED [None]
  - BRAIN NATRIURETIC PEPTIDE ABNORMAL [None]
  - GASTROINTESTINAL HAEMORRHAGE [None]
  - CARDIAC FAILURE [None]
  - ABDOMINAL PAIN [None]
  - MYOCARDIAL INFARCTION [None]
